FAERS Safety Report 8772335 (Version 1)
Quarter: 2012Q4

REPORT INFORMATION
  Report Type: 
  Country: US (occurrence: US)
  Receive Date: 20120906
  Receipt Date: 20120906
  Transmission Date: 20130627
  Serious: No
  Sender: FDA-Public Use
  Company Number: US-009507513-1205USA05012

PATIENT

DRUGS (4)
  1. SINGULAIR [Suspect]
     Indication: HYPERSENSITIVITY
     Dosage: UNK mg, UNK
     Route: 048
     Dates: start: 201204
  2. SINGULAIR [Suspect]
     Indication: ASTHMA
     Dosage: UNK mg, UNK
     Route: 048
     Dates: start: 20120514
  3. ZYRTEC [Concomitant]
  4. VENTOLIN (ALBUTEROL SULFATE) [Concomitant]

REACTIONS (4)
  - Crying [Not Recovered/Not Resolved]
  - Somnambulism [Not Recovered/Not Resolved]
  - Nightmare [Not Recovered/Not Resolved]
  - Adverse event [Not Recovered/Not Resolved]
